FAERS Safety Report 12319743 (Version 1)
Quarter: 2016Q2

REPORT INFORMATION
  Report Type: Spontaneous
  Country: US (occurrence: US)
  Receive Date: 20160429
  Receipt Date: 20160429
  Transmission Date: 20160815
  Serious: No
  Sender: FDA-Public Use
  Company Number: US-ROCHE-1628884

PATIENT
  Sex: Male
  Weight: 104.42 kg

DRUGS (1)
  1. ESBRIET [Suspect]
     Active Substance: PIRFENIDONE
     Indication: PRODUCT USED FOR UNKNOWN INDICATION
     Dosage: 2 CAPSULES THRICE A DAY
     Route: 048
     Dates: start: 20150713

REACTIONS (6)
  - Fatigue [Unknown]
  - Dyspnoea [Unknown]
  - Hepatic enzyme increased [Unknown]
  - Pain [Unknown]
  - Vomiting [Unknown]
  - Cough [Unknown]
